FAERS Safety Report 10659201 (Version 2)
Quarter: 2014Q4

REPORT INFORMATION
  Report Type: Report from Study
  Country: US (occurrence: US)
  Receive Date: 20141217
  Receipt Date: 20141224
  Transmission Date: 20150529
  Serious: Yes (Death)
  Sender: FDA-Public Use
  Company Number: PHEH2014US024789

PATIENT
  Sex: Male

DRUGS (2)
  1. AFINITOR [Suspect]
     Active Substance: EVEROLIMUS
     Indication: OFF LABEL USE
  2. AFINITOR [Suspect]
     Active Substance: EVEROLIMUS
     Indication: LUNG NEOPLASM MALIGNANT
     Dosage: 10 MG, QD
     Route: 048

REACTIONS (3)
  - Malignant neoplasm progression [Fatal]
  - Respiratory distress [Fatal]
  - Product use issue [Unknown]
